FAERS Safety Report 8808187 (Version 1)
Quarter: 2012Q4

REPORT INFORMATION
  Report Type: 
  Country: US (occurrence: US)
  Receive Date: 20120925
  Receipt Date: 20120925
  Transmission Date: 20130627
  Serious: Yes (Other)
  Sender: FDA-Public Use
  Company Number: US-UCBSA-067077

PATIENT
  Age: 37 Year
  Sex: Female

DRUGS (1)
  1. CIMZIA [Suspect]
     Indication: CROHN^S DISEASE
     Dosage: 400MG SC EVERY 4 WEEKS
     Route: 058
     Dates: start: 200810

REACTIONS (1)
  - Cholelithiasis [Not Recovered/Not Resolved]
